FAERS Safety Report 4830887-X (Version None)
Quarter: 2005Q4

REPORT INFORMATION
  Report Type: 
  Country: None (occurrence: None)
  Receive Date: 20051114
  Receipt Date: 20051031
  Transmission Date: 20060501
  Serious: Yes (Other)
  Sender: FDA-Public Use
  Company Number: GB-YAMANOUCHI-YEHQ20051200

PATIENT
  Age: 37 Year
  Sex: Female
  Weight: 97 kg

DRUGS (3)
  1. VESICARE [Suspect]
     Indication: URGE INCONTINENCE
     Dosage: 5 MG DAILY PO
     Route: 048
     Dates: start: 20050929, end: 20051005
  2. VALPROATE SODIUM [Concomitant]
  3. LAMOTRIGINE [Concomitant]

REACTIONS (2)
  - CONDITION AGGRAVATED [None]
  - EPILEPSY [None]
